FAERS Safety Report 9468638 (Version 3)
Quarter: 2013Q3

REPORT INFORMATION
  Report Type: Spontaneous
  Country: BE (occurrence: BE)
  Receive Date: 20130821
  Receipt Date: 20130926
  Transmission Date: 20140515
  Serious: Yes (Other)
  Sender: FDA-Public Use
  Company Number: BE-BRISTOL-MYERS SQUIBB COMPANY-19042464

PATIENT
  Age: 49 Year
  Sex: Male

DRUGS (12)
  1. REYATAZ CAPS 300 MG [Suspect]
     Indication: HIV INFECTION
     Route: 048
  2. FLUCONAZOLE [Concomitant]
     Route: 042
  3. TAZOBACTAM SODIUM [Concomitant]
  4. PIPERACILLIN [Concomitant]
  5. TAZOCIN [Concomitant]
     Route: 042
  6. ZIAGEN [Concomitant]
     Dosage: ZIAGEN  20MG/ML
  7. NEXIUM [Concomitant]
  8. KEPPRA [Concomitant]
     Dosage: KEPPRA  100MG/ML.
  9. EPIVIR [Concomitant]
  10. TEMESTA [Concomitant]
  11. SIPRALEXA [Concomitant]
  12. METHADONE [Concomitant]

REACTIONS (2)
  - Pneumonia aspiration [Unknown]
  - Dysphagia [Unknown]
